FAERS Safety Report 21232614 (Version 1)
Quarter: 2022Q3

REPORT INFORMATION
  Report Type: Spontaneous
  Country: CH (occurrence: CH)
  Receive Date: 20220819
  Receipt Date: 20220819
  Transmission Date: 20221026
  Serious: Yes (Life-Threatening, Other)
  Sender: FDA-Public Use
  Company Number: None

PATIENT
  Age: 20 Year
  Sex: Male
  Weight: 86 kg

DRUGS (9)
  1. HALOPERIDOL DECANOATE [Suspect]
     Active Substance: HALOPERIDOL DECANOATE
     Indication: Hyperarousal
     Route: 030
  2. INVEGA [Suspect]
     Active Substance: PALIPERIDONE
     Indication: Schizophrenia
     Route: 030
  3. PALIPERIDONE PALMITATE [Suspect]
     Active Substance: PALIPERIDONE PALMITATE
     Indication: Schizophrenia
     Route: 030
  4. PALIPERIDONE PALMITATE [Suspect]
     Active Substance: PALIPERIDONE PALMITATE
  5. PALIPERIDONE PALMITATE [Suspect]
     Active Substance: PALIPERIDONE PALMITATE
  6. AKINETON [Suspect]
     Active Substance: BIPERIDEN HYDROCHLORIDE
     Indication: Extrapyramidal disorder
     Route: 042
  7. VALIUM [Suspect]
     Active Substance: DIAZEPAM
     Indication: Hyperarousal
     Route: 030
  8. QUETIAPINE FUMARATE [Concomitant]
     Active Substance: QUETIAPINE FUMARATE
     Route: 048
  9. METOPROLOL SUCCINATE [Concomitant]
     Active Substance: METOPROLOL SUCCINATE
     Route: 048

REACTIONS (9)
  - Coma [Recovered/Resolved]
  - Rhabdomyolysis [Recovered/Resolved]
  - Anticholinergic syndrome [Recovered/Resolved]
  - Muscle spasms [Recovered/Resolved]
  - Mydriasis [Recovered/Resolved]
  - Clonus [Recovered/Resolved]
  - Tremor [Recovered/Resolved]
  - Sinus tachycardia [Recovered/Resolved]
  - Off label use [Unknown]

NARRATIVE: CASE EVENT DATE: 20211213
